FAERS Safety Report 5300389-5 (Version None)
Quarter: 2007Q2

REPORT INFORMATION
  Report Type: 
  Country: None (occurrence: None)
  Receive Date: 20070413
  Receipt Date: 20070413
  Transmission Date: 20071010
  Serious: Yes (Other)
  Sender: FDA-Public Use
  Company Number: None

PATIENT
  Age: 57 Year
  Sex: Female
  Weight: 63.5036 kg

DRUGS (2)
  1. TOPAMAX [Suspect]
     Indication: BIPOLAR II DISORDER
     Dosage: 50 MG   1/DAY   PO
     Route: 048
     Dates: start: 20070314, end: 20070412
  2. TOPAMAX [Suspect]
     Indication: MOOD SWINGS
     Dosage: 50 MG   1/DAY   PO
     Route: 048
     Dates: start: 20070314, end: 20070412

REACTIONS (5)
  - ASTHENOPIA [None]
  - EYE DISORDER [None]
  - EYE PAIN [None]
  - HEADACHE [None]
  - VISION BLURRED [None]
